FAERS Safety Report 7117624-3 (Version None)
Quarter: 2010Q4

REPORT INFORMATION
  Report Type: 
  Country: None (occurrence: None)
  Receive Date: 20101122
  Receipt Date: 20101110
  Transmission Date: 20110411
  Serious: Yes (Life-Threatening, Hospitalization)
  Sender: FDA-Public Use
  Company Number: US-MYLANLABS-2010S1021014

PATIENT
  Age: 20 Month
  Sex: Female

DRUGS (1)
  1. VALPROIC ACID [Suspect]
     Indication: ACCIDENTAL DRUG INTAKE BY CHILD
     Dosage: UP TO 10G.
     Route: 048

REACTIONS (12)
  - ACCIDENTAL OVERDOSE [None]
  - ANAEMIA [None]
  - COAGULOPATHY [None]
  - HYPERAMMONAEMIA [None]
  - HYPERNATRAEMIA [None]
  - HYPOCALCAEMIA [None]
  - HYPOTENSION [None]
  - HYPOTHERMIA [None]
  - LOSS OF CONSCIOUSNESS [None]
  - METABOLIC ACIDOSIS [None]
  - MULTI-ORGAN FAILURE [None]
  - THROMBOCYTOPENIA [None]
